FAERS Safety Report 4766341-3 (Version None)
Quarter: 2005Q3

REPORT INFORMATION
  Report Type: 
  Country: None (occurrence: None)
  Receive Date: 20050909
  Receipt Date: 20050830
  Transmission Date: 20060218
  Serious: Yes (Hospitalization, Other)
  Sender: FDA-Public Use
  Company Number: 2005-08-0797

PATIENT
  Age: 82 Year
  Sex: Female

DRUGS (8)
  1. CELESTAMINE TAB [Suspect]
     Indication: DERMATITIS ALLERGIC
     Dosage: 1 TAB ORAL
     Route: 048
     Dates: start: 20050708, end: 20050714
  2. CELESTAMINE TAB [Suspect]
     Indication: NEUROGENIC BLADDER
     Dosage: 1 TAB ORAL
     Route: 048
     Dates: start: 20050708, end: 20050714
  3. CELESTAMINE TAB [Suspect]
     Indication: DERMATITIS ALLERGIC
     Dosage: 2 TAB ORAL
     Route: 048
     Dates: start: 20050715, end: 20050722
  4. CELESTAMINE TAB [Suspect]
     Indication: NEUROGENIC BLADDER
     Dosage: 2 TAB ORAL
     Route: 048
     Dates: start: 20050715, end: 20050722
  5. ATARAX-P CAPSULES [Concomitant]
  6. MAGNESIUM OXIDE [Concomitant]
  7. POLARAMINE [Concomitant]
  8. BENZALIN TABLETS [Concomitant]

REACTIONS (4)
  - CONJUNCTIVAL DISCOLOURATION [None]
  - GASTRIC ULCER HAEMORRHAGE [None]
  - HAEMATEMESIS [None]
  - PYREXIA [None]
